FAERS Safety Report 24247679 (Version 1)
Quarter: 2024Q3

REPORT INFORMATION
  Report Type: Spontaneous
  Country: GB (occurrence: GB)
  Receive Date: 20240826
  Receipt Date: 20240826
  Transmission Date: 20241017
  Serious: Yes (Disabling, Other)
  Sender: MSN LABORATORIES
  Company Number: None

PATIENT

DRUGS (2)
  1. ATORVASTATIN [Suspect]
     Active Substance: ATORVASTATIN
     Indication: Diabetes mellitus
     Dosage: AT NIGHT
     Route: 065
     Dates: start: 20230327
  2. DAPAGLIFLOZIN AND METFORMIN [Concomitant]
     Route: 065
     Dates: start: 20220710

REACTIONS (5)
  - Groin pain [Not Recovered/Not Resolved]
  - Headache [Unknown]
  - Muscular weakness [Not Recovered/Not Resolved]
  - Myalgia [Not Recovered/Not Resolved]
  - Neck pain [Unknown]

NARRATIVE: CASE EVENT DATE: 20230406
